FAERS Safety Report 9499869 (Version 1)
Quarter: 2013Q1

REPORT INFORMATION
  Report Type: Spontaneous
  Country: US (occurrence: None)
  Receive Date: 20130118
  Receipt Date: 20130118
  Transmission Date: 20140127
  Serious: No
  Sender: FDA-Public Use
  Company Number: A-US2012-61962

PATIENT
  Age: 49 Year
  Sex: Female

DRUGS (2)
  1. TRACLEER (BOSENTAN) [Suspect]
     Indication: PULMONARY ARTERIAL HYPERTENSION
     Route: 048
     Dates: start: 20120130
  2. VENTAVIS (ILOPROST) [Concomitant]

REACTIONS (2)
  - Syncope [None]
  - Heart rate increased [None]
